FAERS Safety Report 6747099-5 (Version None)
Quarter: 2010Q2

REPORT INFORMATION
  Report Type: 
  Country: None (occurrence: None)
  Receive Date: 20100528
  Receipt Date: 20100527
  Transmission Date: 20101027
  Serious: Yes (Death)
  Sender: FDA-Public Use
  Company Number: DE-CEPHALON-2010002964

PATIENT

DRUGS (1)
  1. EFFENTORA [Suspect]
     Route: 002

REACTIONS (1)
  - DEATH [None]
